FAERS Safety Report 8369529-8 (Version None)
Quarter: 2012Q2

REPORT INFORMATION
  Report Type: 
  Country: None (occurrence: None)
  Receive Date: 20120518
  Receipt Date: 20120507
  Transmission Date: 20120825
  Serious: Yes (Hospitalization)
  Sender: FDA-Public Use
  Company Number: US-SHIRE-ALL1-2012-02427

PATIENT
  Sex: Female
  Weight: 56.689 kg

DRUGS (9)
  1. TOPROL-XL [Concomitant]
     Indication: HYPERTENSION
     Dosage: 100 MG, 1X/DAY:QD
     Route: 048
  2. LISINOPRIL [Concomitant]
     Indication: HYPERTENSION
     Dosage: 40 MG, 1X/DAY:QD (TWO 20 MG TABLETS)
     Route: 048
  3. XANAX [Concomitant]
     Indication: SLEEP DISORDER
     Dosage: UNK, AS REQ'D (HALF OF A 0.5 MG TABLET)
     Route: 048
     Dates: start: 20111001
  4. PHENERGAN [Concomitant]
     Indication: NAUSEA
     Dosage: 25 MG, AS REQ'D (EVERY 4-6 HOURS AS NEEDED)
     Route: 048
     Dates: start: 20110801
  5. LIALDA [Suspect]
     Indication: COLITIS
     Dosage: 3.6 G, 1X/DAY:QD
     Route: 048
     Dates: start: 20120407, end: 20120408
  6. NORVASC [Concomitant]
     Indication: HYPERTENSION
     Dosage: 10 MG, 1X/DAY:QD
     Route: 048
     Dates: start: 20120101
  7. LIALDA [Suspect]
     Dosage: 1.2 G, 1X/DAY:QD
     Route: 048
     Dates: start: 20120411, end: 20120412
  8. ACIPHEX [Concomitant]
     Indication: GASTROOESOPHAGEAL REFLUX DISEASE
     Dosage: 20 MG, 1X/DAY:QD
     Route: 048
  9. HYDROCODONE [Concomitant]
     Indication: PAIN
     Dosage: UNK UNK, AS REQ'D (ONE OR TWO 5/500 MG TABLETS EVERY 4-6 HOURS AS NEEDED)
     Route: 048
     Dates: start: 20110801

REACTIONS (5)
  - NEPHROLITHIASIS [None]
  - DIARRHOEA [None]
  - ABDOMINAL PAIN [None]
  - VOMITING [None]
  - NAUSEA [None]
